FAERS Safety Report 6184614-7 (Version None)
Quarter: 2009Q2

REPORT INFORMATION
  Report Type: 
  Country: None (occurrence: None)
  Receive Date: 20090508
  Receipt Date: 20090506
  Transmission Date: 20091009
  Serious: Yes (Hospitalization)
  Sender: FDA-Public Use
  Company Number: PHHO2005DK06112

PATIENT
  Sex: Male
  Weight: 109.1 kg

DRUGS (3)
  1. CIBADREX T29368+ [Suspect]
     Indication: HYPERTENSION
     Dosage: UNK, LEVEL 1
     Route: 048
     Dates: start: 20050405, end: 20050410
  2. CIBADREX T29368+ [Suspect]
     Dosage: UNK, UNK
  3. FRAGMIN [Concomitant]
     Indication: PROPHYLAXIS
     Dosage: 18000 UNK, UNK
     Route: 058
     Dates: start: 20050408, end: 20050411

REACTIONS (2)
  - CHEST DISCOMFORT [None]
  - DYSPNOEA [None]
